FAERS Safety Report 6062572-3 (Version None)
Quarter: 2009Q1

REPORT INFORMATION
  Report Type: 
  Country: None (occurrence: None)
  Receive Date: 20090202
  Receipt Date: 20090202
  Transmission Date: 20090719
  Serious: Yes (Other)
  Sender: FDA-Public Use
  Company Number: None

PATIENT
  Age: 47 Year
  Sex: Male
  Weight: 93.441 kg

DRUGS (1)
  1. METOPROLOL SUCCINATE [Suspect]
     Indication: VENTRICULAR EXTRASYSTOLES
     Dosage: 50 MG 1 X DAY
     Dates: start: 20080708, end: 20090129

REACTIONS (9)
  - ANOREXIA [None]
  - CONFUSIONAL STATE [None]
  - DYSARTHRIA [None]
  - HEADACHE [None]
  - MALAISE [None]
  - PARALYSIS [None]
  - PERIPHERAL COLDNESS [None]
  - PRODUCT QUALITY ISSUE [None]
  - VISION BLURRED [None]
